FAERS Safety Report 14367375 (Version 4)
Quarter: 2018Q2

REPORT INFORMATION
  Report Type: Spontaneous
  Country: US (occurrence: US)
  Receive Date: 20180109
  Receipt Date: 20180427
  Transmission Date: 20180711
  Serious: Yes (Other)
  Sender: FDA-Public Use
  Company Number: US-009507513-1801USA001066

PATIENT
  Age: 70 Year
  Sex: Male
  Weight: 66.24 kg

DRUGS (1)
  1. KEYTRUDA [Suspect]
     Active Substance: PEMBROLIZUMAB
     Indication: LUNG ADENOCARCINOMA
     Dosage: 140 MG, EVERY 3 WEEKS
     Route: 042
     Dates: start: 20170505, end: 20171206

REACTIONS (2)
  - Mucosal inflammation [Unknown]
  - Burn oral cavity [Unknown]

NARRATIVE: CASE EVENT DATE: 20171031
